FAERS Safety Report 12268946 (Version 3)
Quarter: 2016Q2

REPORT INFORMATION
  Report Type: Spontaneous
  Country: TH (occurrence: TH)
  Receive Date: 20160414
  Receipt Date: 20160622
  Transmission Date: 20160815
  Serious: Yes (Hospitalization)
  Sender: FDA-Public Use
  Company Number: TH-PFIZER INC-2016201854

PATIENT
  Age: 67 Year
  Sex: Female

DRUGS (3)
  1. SUTENT [Suspect]
     Active Substance: SUNITINIB MALATE
     Dosage: 12.5 MG, DAILY
  2. SUTENT [Suspect]
     Active Substance: SUNITINIB MALATE
     Dosage: 25 MG, DAILY
     Route: 048
     Dates: start: 20160401
  3. SUTENT [Suspect]
     Active Substance: SUNITINIB MALATE
     Indication: METASTATIC RENAL CELL CARCINOMA
     Dosage: 50 MG, DAILY
     Route: 048
     Dates: start: 20160321, end: 20160331

REACTIONS (12)
  - Cough [Recovered/Resolved]
  - Chapped lips [Recovering/Resolving]
  - Dyspnoea [Recovering/Resolving]
  - Decreased appetite [Recovering/Resolving]
  - Mouth ulceration [Recovering/Resolving]
  - Pruritus [Recovered/Resolved]
  - Dysgeusia [Not Recovered/Not Resolved]
  - Fatigue [Not Recovered/Not Resolved]
  - Chest discomfort [Unknown]
  - Loss of consciousness [Recovered/Resolved]
  - Pain in extremity [Recovered/Resolved]
  - Skin atrophy [Recovered/Resolved]

NARRATIVE: CASE EVENT DATE: 20160402
